FAERS Safety Report 9060709 (Version 9)
Quarter: 2014Q2

REPORT INFORMATION
  Report Type: Report from Study
  Country: CA (occurrence: CA)
  Receive Date: 20130204
  Receipt Date: 20140505
  Transmission Date: 20141212
  Serious: Yes (Hospitalization, Other)
  Sender: FDA-Public Use
  Company Number: CA-ROCHE-1186531

PATIENT
  Sex: Female
  Weight: 65.9 kg

DRUGS (10)
  1. RITUXAN [Suspect]
     Indication: PSORIATIC ARTHROPATHY
     Dosage: LAST DOSE PRIOR TO AE ON 26/AUG/2013.
     Route: 042
     Dates: start: 20111102
  2. NEXIUM [Suspect]
     Indication: GASTROOESOPHAGEAL REFLUX DISEASE
     Route: 065
     Dates: start: 2013, end: 2013
  3. CELLCEPT [Concomitant]
  4. DILTIAZEM [Concomitant]
  5. RAMIPRIL [Concomitant]
  6. PREDNISONE [Concomitant]
  7. PLAQUENIL [Concomitant]
  8. PREMARIN [Concomitant]
  9. TYLENOL #3 (CANADA) [Concomitant]
     Dosage: AS REQUIRED
     Route: 065
  10. CODEINE [Concomitant]
     Dosage: AS REQUIRED
     Route: 065

REACTIONS (8)
  - Viral infection [Recovering/Resolving]
  - Lung neoplasm malignant [Not Recovered/Not Resolved]
  - Infectious colitis [Recovered/Resolved]
  - Liver function test abnormal [Not Recovered/Not Resolved]
  - Urinary incontinence [Not Recovered/Not Resolved]
  - Gastrooesophageal reflux disease [Not Recovered/Not Resolved]
  - Decreased appetite [Not Recovered/Not Resolved]
  - Off label use [Unknown]
